FAERS Safety Report 11124655 (Version 1)
Quarter: 2015Q2

REPORT INFORMATION
  Report Type: Spontaneous
  Country: US (occurrence: US)
  Receive Date: 20150520
  Receipt Date: 20150520
  Transmission Date: 20150821
  Serious: No
  Sender: FDA-Public Use
  Company Number: US-BAXTER-2015BAX024726

PATIENT
  Age: 50 Year
  Sex: Female

DRUGS (3)
  1. HYQVIA [Suspect]
     Active Substance: HUMAN IMMUNOGLOBULIN G\HYALURONIDASE RECOMBINANT HUMAN
     Dosage: THIRD INFUSION
     Route: 065
     Dates: start: 201504
  2. HYQVIA [Suspect]
     Active Substance: HUMAN IMMUNOGLOBULIN G\HYALURONIDASE RECOMBINANT HUMAN
     Indication: PRODUCT USED FOR UNKNOWN INDICATION
     Dosage: FIRST INFUSION
     Route: 065
     Dates: start: 201504
  3. HYQVIA [Suspect]
     Active Substance: HUMAN IMMUNOGLOBULIN G\HYALURONIDASE RECOMBINANT HUMAN
     Dosage: SECOND INFUSION
     Route: 065
     Dates: start: 201504

REACTIONS (5)
  - Pain [Unknown]
  - Headache [Unknown]
  - Erythema [Unknown]
  - Diarrhoea [Unknown]
  - Tenderness [Unknown]

NARRATIVE: CASE EVENT DATE: 201504
